FAERS Safety Report 5853587-6 (Version None)
Quarter: 2008Q3

REPORT INFORMATION
  Report Type: 
  Country: None (occurrence: None)
  Receive Date: 20080822
  Receipt Date: 20080818
  Transmission Date: 20090109
  Serious: Yes (Death)
  Sender: FDA-Public Use
  Company Number: US-JNJFOC-20080704263

PATIENT
  Sex: Male

DRUGS (2)
  1. TRAMADOL HCL [Suspect]
     Indication: PAIN
     Dosage: 1-2 TABLETS EVERY 6 HOURS AS NEEDED
     Route: 048
  2. LORCET-HD [Concomitant]
     Indication: PAIN
     Dosage: 1-2 TABLETS EVERY 6 HOURS AS NEEDED
     Route: 048

REACTIONS (9)
  - ABDOMINAL PAIN UPPER [None]
  - COMPLETED SUICIDE [None]
  - CONVULSION [None]
  - DRUG DEPENDENCE [None]
  - MALAISE [None]
  - MENTAL DISORDER [None]
  - MOOD ALTERED [None]
  - VOMITING [None]
  - WITHDRAWAL SYNDROME [None]
